FAERS Safety Report 13641973 (Version 1)
Quarter: 2017Q2

REPORT INFORMATION
  Report Type: Spontaneous
  Country: US (occurrence: US)
  Receive Date: 20170610
  Receipt Date: 20170610
  Transmission Date: 20170830
  Serious: No
  Sender: FDA-Public Use
  Company Number: None

PATIENT
  Age: 22 Year
  Sex: Male

DRUGS (1)
  1. TRUVADA [Suspect]
     Active Substance: EMTRICITABINE\TENOFOVIR DISOPROXIL FUMARATE

REACTIONS (6)
  - Urine abnormality [None]
  - Diarrhoea [None]
  - Liver injury [None]
  - Headache [None]
  - Weight increased [None]
  - Chromaturia [None]

NARRATIVE: CASE EVENT DATE: 20170609
